FAERS Safety Report 20760431 (Version 1)
Quarter: 2022Q2

REPORT INFORMATION
  Report Type: Spontaneous
  Country: US (occurrence: US)
  Receive Date: 20220428
  Receipt Date: 20220428
  Transmission Date: 20220721
  Serious: No
  Sender: FDA-Public Use
  Company Number: US-JNJFOC-20220432450

PATIENT
  Age: 68 Year
  Sex: Female
  Weight: 86.260 kg

DRUGS (5)
  1. TYLENOL [Suspect]
     Active Substance: ACETAMINOPHEN
     Indication: Pyrexia
     Route: 065
  2. TYLENOL [Suspect]
     Active Substance: ACETAMINOPHEN
     Indication: Chills
  3. TYLENOL [Suspect]
     Active Substance: ACETAMINOPHEN
     Indication: Pneumonia
  4. TYLENOL [Suspect]
     Active Substance: ACETAMINOPHEN
     Indication: Malaise
  5. OPSUMIT [Concomitant]
     Active Substance: MACITENTAN
     Indication: Pulmonary arterial hypertension
     Route: 065

REACTIONS (1)
  - Product use in unapproved indication [Unknown]
